FAERS Safety Report 5731792-7 (Version None)
Quarter: 2008Q2

REPORT INFORMATION
  Report Type: 
  Country: None (occurrence: None)
  Receive Date: 20080506
  Receipt Date: 20080506
  Transmission Date: 20081010
  Serious: Yes (Life-Threatening)
  Sender: FDA-Public Use
  Company Number: None

PATIENT
  Age: 78 Year
  Sex: Male

DRUGS (1)
  1. VALPROIC ACID [Suspect]
     Dosage: 250 MG BID PO
     Route: 048
     Dates: start: 20070725, end: 20080207

REACTIONS (1)
  - THROMBOCYTOPENIA [None]
